FAERS Safety Report 6683319-3 (Version None)
Quarter: 2010Q2

REPORT INFORMATION
  Report Type: 
  Country: None (occurrence: None)
  Receive Date: 20100415
  Receipt Date: 20100401
  Transmission Date: 20101027
  Serious: Yes (Hospitalization, Other)
  Sender: FDA-Public Use
  Company Number: PHHY2010CH19959

PATIENT
  Sex: Female

DRUGS (8)
  1. ZOMETA [Suspect]
     Indication: BREAST CANCER METASTATIC
     Dosage: 4 MG EVERY 8 WEEKS
     Route: 042
     Dates: start: 20030101
  2. METOJECT [Suspect]
     Indication: WEGENER'S GRANULOMATOSIS
     Dosage: 10-25 MG/WEEK
     Route: 058
     Dates: start: 20091101, end: 20100308
  3. FEMARA [Concomitant]
     Indication: NEOPLASM MALIGNANT
     Dosage: 2.5 MG / D
     Dates: start: 20000101
  4. PREDNISONE TAB [Concomitant]
     Indication: WEGENER'S GRANULOMATOSIS
     Dosage: 20 MG / D
     Dates: start: 20090101
  5. ACIDUM FOLICUM STREULI [Concomitant]
     Dosage: 5 MG/D
     Dates: start: 20090101, end: 20100310
  6. PANTOPRAZOLE SODIUM [Concomitant]
     Dosage: UNK
  7. RENITEN MITE [Concomitant]
     Indication: HYPERTENSION
     Dosage: 1 DOSAGE FORM/DAY
     Dates: start: 20100309, end: 20100315
  8. RENITEN [Concomitant]
     Indication: HYPERTENSION
     Dosage: 1 DOSAGE FORM/DAY
     Dates: start: 20100316

REACTIONS (4)
  - CREATININE RENAL CLEARANCE DECREASED [None]
  - PROTEINURIA [None]
  - RENAL TUBULAR NECROSIS [None]
  - WEGENER'S GRANULOMATOSIS [None]
